FAERS Safety Report 16694229 (Version 2)
Quarter: 2019Q3

REPORT INFORMATION
  Report Type: Spontaneous
  Country: US (occurrence: US)
  Receive Date: 20190812
  Receipt Date: 20190905
  Transmission Date: 20191004
  Serious: No
  Sender: FDA-Public Use
  Company Number: US-ACTELION-A-NJ2019-194013

PATIENT
  Age: 88 Year
  Sex: Male

DRUGS (1)
  1. UPTRAVI [Suspect]
     Active Substance: SELEXIPAG
     Indication: PRODUCT USED FOR UNKNOWN INDICATION
     Dosage: UNK
     Route: 048

REACTIONS (12)
  - Arthralgia [Unknown]
  - Feeling abnormal [Unknown]
  - Myalgia [Unknown]
  - Poor quality sleep [Unknown]
  - Neck pain [Unknown]
  - Pain in jaw [Unknown]
  - Nausea [Unknown]
  - Decreased appetite [Unknown]
  - Chills [Unknown]
  - Nasopharyngitis [Unknown]
  - Diarrhoea [Unknown]
  - Fatigue [Unknown]
